FAERS Safety Report 4533622-8 (Version None)
Quarter: 2004Q4

REPORT INFORMATION
  Report Type: 
  Country: None (occurrence: None)
  Receive Date: 20041221
  Receipt Date: 20041020
  Transmission Date: 20050328
  Serious: Yes (Hospitalization, Other)
  Sender: FDA-Public Use
  Company Number: PHHO2004GB14860

PATIENT
  Age: 54 Year
  Sex: Female
  Weight: 70 kg

DRUGS (5)
  1. DEXAMETHASONE [Concomitant]
  2. ZOLEDRONIC ACID [Suspect]
     Indication: METASTASES TO BONE
     Dosage: 4 MG
     Route: 042
     Dates: start: 20040126
  3. EPIRUBICIN [Concomitant]
     Indication: BREAST CANCER
     Dosage: 75 MG/M2, TIW
     Route: 042
     Dates: start: 20040126, end: 20040525
  4. FLUOROURACIL [Concomitant]
     Indication: BREAST CANCER
     Dosage: 600 MG/M2, TIW
     Route: 042
     Dates: start: 20040126, end: 20040525
  5. CYCLOPHOSPHAMIDE [Concomitant]
     Indication: BREAST CANCER
     Dosage: 600 MG, TIW
     Route: 042
     Dates: start: 20040126, end: 20040525

REACTIONS (5)
  - GINGIVAL INFECTION [None]
  - IMPAIRED HEALING [None]
  - OSTEONECROSIS [None]
  - PAIN IN JAW [None]
  - SURGERY [None]
